FAERS Safety Report 7954459-3 (Version None)
Quarter: 2011Q4

REPORT INFORMATION
  Report Type: 
  Country: None (occurrence: None)
  Receive Date: 20111202
  Receipt Date: 20111123
  Transmission Date: 20120403
  Serious: Yes (Other)
  Sender: FDA-Public Use
  Company Number: US-JNJFOC-20111111285

PATIENT
  Age: 31 Year
  Sex: Male

DRUGS (12)
  1. BENADRYL [Suspect]
     Route: 065
  2. BENADRYL [Suspect]
     Indication: MIGRAINE
     Route: 065
     Dates: start: 20111002, end: 20111002
  3. VIIBRYD [Suspect]
     Route: 065
     Dates: start: 20111001, end: 20111001
  4. VIIBRYD [Suspect]
     Route: 065
     Dates: start: 20111003, end: 20111004
  5. CYMBALTA [Concomitant]
     Indication: PAIN
     Dosage: WEANING OFF
     Route: 048
     Dates: end: 20111001
  6. LYRICA [Concomitant]
     Indication: MIGRAINE
     Route: 065
  7. CYMBALTA [Concomitant]
     Indication: DEPRESSION
     Dosage: WEANING OFF
     Route: 048
     Dates: end: 20111001
  8. VIIBRYD [Suspect]
     Indication: DEPRESSION
     Route: 065
     Dates: start: 20111001, end: 20111001
  9. REGLAN [Suspect]
     Indication: MIGRAINE
     Route: 065
     Dates: start: 20111002, end: 20111002
  10. HALDOL [Suspect]
     Indication: MIGRAINE
     Route: 065
     Dates: start: 20111002, end: 20111002
  11. VIIBRYD [Suspect]
     Indication: PAIN
     Route: 065
     Dates: start: 20111003, end: 20111004
  12. IMITREX [Concomitant]
     Indication: PRODUCT USED FOR UNKNOWN INDICATION
     Route: 065

REACTIONS (2)
  - DYSTONIA [None]
  - PAIN IN EXTREMITY [None]
